FAERS Safety Report 7463780-7 (Version None)
Quarter: 2011Q2

REPORT INFORMATION
  Report Type: 
  Country: None (occurrence: None)
  Receive Date: 20110506
  Receipt Date: 20110425
  Transmission Date: 20111010
  Serious: Yes (Other)
  Sender: FDA-Public Use
  Company Number: CA-ELI_LILLY_AND_COMPANY-CA201104007400

PATIENT
  Age: 86 Year
  Sex: Female

DRUGS (7)
  1. VITAMIN D [Concomitant]
  2. ATACAND [Concomitant]
  3. FORTEO [Suspect]
     Indication: OSTEOPOROSIS
     Dosage: 20 UG, QD
     Route: 058
     Dates: start: 20110314, end: 20110420
  4. CALCIUM [Concomitant]
  5. LASIX [Concomitant]
  6. METOPROLOL SUCCINATE [Concomitant]
  7. LIPIDIL [Concomitant]

REACTIONS (3)
  - TRANSIENT ISCHAEMIC ATTACK [None]
  - CALCINOSIS [None]
  - INCOHERENT [None]
